FAERS Safety Report 18314926 (Version 3)
Quarter: 2020Q4

REPORT INFORMATION
  Report Type: Report from Study
  Country: IN (occurrence: IN)
  Receive Date: 20200925
  Receipt Date: 20201021
  Transmission Date: 20210113
  Serious: Yes (Death, Hospitalization, Other)
  Sender: FDA-Public Use
  Company Number: NVSC2020IN259016

PATIENT
  Age: 67 Year
  Sex: Male

DRUGS (3)
  1. REVOLADE [Suspect]
     Active Substance: ELTROMBOPAG
     Dosage: UNK
     Route: 048
     Dates: start: 20201007
  2. REVOLADE [Suspect]
     Active Substance: ELTROMBOPAG
     Dosage: 100 MG, QD
     Route: 048
     Dates: start: 20200918, end: 20201002
  3. REVOLADE [Suspect]
     Active Substance: ELTROMBOPAG
     Indication: APLASTIC ANAEMIA
     Dosage: 75 MG, QD
     Route: 048
     Dates: start: 20200317, end: 20200917

REACTIONS (24)
  - Asthenia [Recovering/Resolving]
  - Frequent bowel movements [Recovered/Resolved]
  - Febrile neutropenia [Not Recovered/Not Resolved]
  - Pancytopenia [Fatal]
  - Apraxia [Fatal]
  - Biliary fistula [Recovering/Resolving]
  - Hyperchlorhydria [Not Recovered/Not Resolved]
  - Back pain [Not Recovered/Not Resolved]
  - Unresponsive to stimuli [Unknown]
  - Increased appetite [Recovered/Resolved]
  - Abdominal pain [Recovering/Resolving]
  - Dyskinesia [Fatal]
  - Hemiplegia [Unknown]
  - Crohn^s disease [Not Recovered/Not Resolved]
  - Escherichia bacteraemia [Not Recovered/Not Resolved]
  - Chest pain [Not Recovered/Not Resolved]
  - Drug ineffective [Unknown]
  - Paralysis [Not Recovered/Not Resolved]
  - Speech disorder [Unknown]
  - Movement disorder [Unknown]
  - Loss of consciousness [Fatal]
  - Depressed level of consciousness [Unknown]
  - Rectal haemorrhage [Recovering/Resolving]
  - Pyrexia [Recovering/Resolving]

NARRATIVE: CASE EVENT DATE: 202004
